FAERS Safety Report 23774230 (Version 3)
Quarter: 2024Q2

REPORT INFORMATION
  Report Type: Report from Study
  Country: US (occurrence: US)
  Receive Date: 20240423
  Receipt Date: 20240506
  Transmission Date: 20240716
  Serious: Yes (Hospitalization, Other)
  Sender: FDA-Public Use
  Company Number: US-002147023-NVSC2024US084158

PATIENT
  Sex: Female

DRUGS (1)
  1. KISQALI [Suspect]
     Active Substance: RIBOCICLIB
     Indication: Breast cancer metastatic
     Dosage: 600 MG, QD
     Route: 048

REACTIONS (11)
  - Pulmonary oedema [Unknown]
  - Cough [Unknown]
  - Chest discomfort [Unknown]
  - Dyspnoea [Unknown]
  - Insomnia [Unknown]
  - Vomiting [Unknown]
  - Throat irritation [Unknown]
  - Fatigue [Unknown]
  - Constipation [Unknown]
  - Product dose omission issue [Unknown]
  - Contusion [Unknown]
